FAERS Safety Report 5287558-8 (Version None)
Quarter: 2007Q1

REPORT INFORMATION
  Report Type: 
  Country: None (occurrence: None)
  Receive Date: 20070126
  Receipt Date: 20061025
  Transmission Date: 20070707
  Serious: No
  Sender: FDA-Public Use
  Company Number: 2006CT000814

PATIENT
  Age: 64 Year
  Sex: Female
  Weight: 68.9467 kg

DRUGS (7)
  1. VENTAVIS [Suspect]
     Indication: PULMONARY HYPERTENSION
     Dosage: 5 UG;6XD;INH
     Route: 055
     Dates: start: 20060831
  2. ESTRADIOL [Concomitant]
  3. NEOMYCIN SULFATE [Concomitant]
  4. OMEPRAZOLE [Concomitant]
  5. ZINC SULFATE [Concomitant]
  6. LACTULOSE [Concomitant]
  7. MEPHYTON [Concomitant]

REACTIONS (6)
  - BURNING SENSATION [None]
  - DIARRHOEA [None]
  - HYPOAESTHESIA [None]
  - NAUSEA [None]
  - PERIPHERAL COLDNESS [None]
  - VOMITING [None]
